FAERS Safety Report 7478132-3 (Version None)
Quarter: 2011Q2

REPORT INFORMATION
  Report Type: 
  Country: None (occurrence: None)
  Receive Date: 20110513
  Receipt Date: 20110510
  Transmission Date: 20111010
  Serious: Yes (Hospitalization, Other)
  Sender: FDA-Public Use
  Company Number: US-BAYER-2011-040660

PATIENT
  Sex: Female

DRUGS (1)
  1. YAZ [Suspect]
     Dosage: UNK
     Dates: start: 20090201, end: 20090528

REACTIONS (4)
  - CHEST PAIN [None]
  - DYSPNOEA [None]
  - INJURY [None]
  - PULMONARY EMBOLISM [None]
